FAERS Safety Report 6476620-X (Version None)
Quarter: 2009Q4

REPORT INFORMATION
  Report Type: 
  Country: None (occurrence: None)
  Receive Date: 20091204
  Receipt Date: 20091204
  Transmission Date: 20100525
  Serious: No
  Sender: FDA-Public Use
  Company Number: None

PATIENT
  Sex: Male
  Weight: 103.4201 kg

DRUGS (1)
  1. OMEPRAZOLE [Suspect]
     Dosage: 20 MG
     Dates: start: 20090824

REACTIONS (1)
  - GASTROOESOPHAGEAL REFLUX DISEASE [None]
